FAERS Safety Report 4753611-8 (Version None)
Quarter: 2005Q3

REPORT INFORMATION
  Report Type: 
  Country: None (occurrence: None)
  Receive Date: 20050826
  Receipt Date: 20041115
  Transmission Date: 20060218
  Serious: No
  Sender: FDA-Public Use
  Company Number: US-GLAXOSMITHKLINE-A0533968A

PATIENT
  Age: 82 Year
  Sex: Male
  Weight: 102.3 kg

DRUGS (6)
  1. BECONASE [Suspect]
     Indication: DRUG USE FOR UNKNOWN INDICATION
     Dosage: 4SPR PER DAY
     Route: 045
     Dates: start: 20030201
  2. ALTACE [Concomitant]
     Indication: HYPERTENSION
     Dosage: 5MG PER DAY
     Route: 048
     Dates: start: 20030201
  3. CELEBREX [Concomitant]
     Indication: ARTHRITIS
     Dosage: 200MG PER DAY
     Route: 048
     Dates: start: 20040701
  4. CARDURA [Concomitant]
     Dosage: 8MG PER DAY
     Route: 048
     Dates: start: 20030201
  5. LIPITOR [Concomitant]
     Dosage: 20MG PER DAY
     Route: 048
     Dates: start: 20030201
  6. RANITIDINE HCL [Concomitant]
     Dosage: 150MG PER DAY
     Route: 048
     Dates: start: 20030201

REACTIONS (3)
  - DRUG INEFFECTIVE [None]
  - PHARMACEUTICAL PRODUCT COMPLAINT [None]
  - SINUS CONGESTION [None]
